FAERS Safety Report 6599352-6 (Version None)
Quarter: 2010Q1

REPORT INFORMATION
  Report Type: 
  Country: None (occurrence: None)
  Receive Date: 20100217
  Receipt Date: 20100202
  Transmission Date: 20100710
  Serious: Yes (Other)
  Sender: FDA-Public Use
  Company Number: B0632946A

PATIENT
  Sex: 0

DRUGS (3)
  1. TOPOTECAN HYDROCHLORIDE [Suspect]
     Indication: MALIGNANT NERVOUS SYSTEM NEOPLASM
  2. TAMOXIFEN CITRATE [Suspect]
     Indication: MALIGNANT NERVOUS SYSTEM NEOPLASM
     Dosage: 100 MG / TWICE PER DAY / ORAL
     Route: 048
  3. CARBOPLATIN [Suspect]
     Indication: MALIGNANT NERVOUS SYSTEM NEOPLASM

REACTIONS (3)
  - DEEP VEIN THROMBOSIS [None]
  - DRUG TOXICITY [None]
  - PULMONARY EMBOLISM [None]
